FAERS Safety Report 5796282-4 (Version None)
Quarter: 2008Q2

REPORT INFORMATION
  Report Type: 
  Country: None (occurrence: None)
  Receive Date: 20080627
  Receipt Date: 20080619
  Transmission Date: 20081010
  Serious: Yes (Hospitalization, Other)
  Sender: FDA-Public Use
  Company Number: FEI2008-0748

PATIENT
  Age: 33 Year
  Sex: Female
  Weight: 108.8633 kg

DRUGS (1)
  1. PARAGARD T 380A [Suspect]
     Indication: CONTRACEPTION
     Dosage: INTRA-UTERINE
     Route: 015
     Dates: start: 20030401, end: 20080403

REACTIONS (13)
  - BIOPSY ENDOMETRIUM ABNORMAL [None]
  - COMPLICATION OF DEVICE INSERTION [None]
  - CONTRACEPTIVE DEVICE COMPLICATION [None]
  - EMOTIONAL DISTRESS [None]
  - FOREIGN BODY TRAUMA [None]
  - GASTRIC BYPASS [None]
  - IATROGENIC INJURY [None]
  - MENORRHAGIA [None]
  - MENSTRUATION IRREGULAR [None]
  - METRORRHAGIA [None]
  - REFUSAL OF TREATMENT BY PATIENT [None]
  - UTERINE POLYP [None]
  - WEIGHT INCREASED [None]
